FAERS Safety Report 9726110 (Version 4)
Quarter: 2014Q4

REPORT INFORMATION
  Report Type: Spontaneous
  Country: US (occurrence: US)
  Receive Date: 20131203
  Receipt Date: 20141002
  Transmission Date: 20150529
  Serious: Yes (Hospitalization, Other)
  Sender: FDA-Public Use
  Company Number: US-BAYER-2013-144232

PATIENT
  Age: 33 Year
  Sex: Female
  Weight: 52.61 kg

DRUGS (1)
  1. MIRENA [Suspect]
     Active Substance: LEVONORGESTREL
     Indication: CONTRACEPTION
     Dosage: 20 MCG/24HR, CONT
     Route: 015
     Dates: start: 20080827, end: 20111213

REACTIONS (11)
  - Uterine perforation [None]
  - Device dislocation [None]
  - Injury [None]
  - Endometriosis [None]
  - Anxiety [None]
  - Emotional distress [None]
  - Device issue [None]
  - Pain [None]
  - Genital haemorrhage [None]
  - Menometrorrhagia [None]
  - Abdominal pain lower [None]

NARRATIVE: CASE EVENT DATE: 20111026
